FAERS Safety Report 4597322-0 (Version None)
Quarter: 2005Q1

REPORT INFORMATION
  Report Type: 
  Country: None (occurrence: None)
  Receive Date: 20050225
  Receipt Date: 20050225
  Transmission Date: 20050727
  Serious: No
  Sender: FDA-Public Use
  Company Number: None

PATIENT
  Sex: Female
  Weight: 74.3899 kg

DRUGS (2)
  1. COUMADIN [Suspect]
     Indication: COAGULOPATHY
     Dosage: 5 MG 1 Q DAILY
  2. COUMADIN [Suspect]
     Dosage: 2 MG 1 DAILY

REACTIONS (2)
  - PHARMACEUTICAL PRODUCT COMPLAINT [None]
  - PROTHROMBIN TIME SHORTENED [None]
